FAERS Safety Report 8991435 (Version 1)
Quarter: 2012Q4

REPORT INFORMATION
  Report Type: Report from Study
  Country: US (occurrence: US)
  Receive Date: 20121230
  Receipt Date: 20121230
  Transmission Date: 20130627
  Serious: Yes (Hospitalization)
  Sender: FDA-Public Use
  Company Number: US-US-EMD SERONO, INC.-7184352

PATIENT
  Sex: Female

DRUGS (3)
  1. REBIF [Suspect]
     Indication: MULTIPLE SCLEROSIS
     Route: 058
     Dates: start: 20110729
  2. LEVOTHYROXINE [Concomitant]
     Indication: THYROID DISORDER
  3. FUROSEMIDE [Concomitant]
     Indication: PRODUCT USED FOR UNKNOWN INDICATION

REACTIONS (7)
  - Pulmonary oedema [Recovering/Resolving]
  - Heart valve incompetence [Recovering/Resolving]
  - Muscle tightness [Unknown]
  - Visual impairment [Unknown]
  - Tremor [Unknown]
  - Muscular weakness [Unknown]
  - Fatigue [Unknown]
